FAERS Safety Report 6545191-1 (Version None)
Quarter: 2010Q1

REPORT INFORMATION
  Report Type: 
  Country: None (occurrence: None)
  Receive Date: 20100121
  Receipt Date: 20090504
  Transmission Date: 20100710
  Serious: No
  Sender: FDA-Public Use
  Company Number: US-KINGPHARMUSA00001-K200900549

PATIENT
  Sex: Female
  Weight: 64.853 kg

DRUGS (2)
  1. EPIPEN [Suspect]
     Dosage: UNK, SINGLE
     Dates: start: 20090504, end: 20090504
  2. PENTOXIFYLLINE [Concomitant]
     Indication: PERIPHERAL VASCULAR DISORDER
     Dosage: 400 MG, TID
     Route: 048

REACTIONS (6)
  - ACCIDENTAL EXPOSURE [None]
  - BALANCE DISORDER [None]
  - CONSTIPATION [None]
  - DYSURIA [None]
  - HEART RATE INCREASED [None]
  - INJECTION SITE HAEMATOMA [None]
